FAERS Safety Report 15553606 (Version 1)
Quarter: 2018Q4

REPORT INFORMATION
  Report Type: Spontaneous
  Country: US (occurrence: US)
  Receive Date: 20181026
  Receipt Date: 20181026
  Transmission Date: 20190205
  Serious: No
  Sender: FDA-Public Use
  Company Number: US-AMGEN INC.-USASP2018149923

PATIENT
  Age: 62 Year
  Sex: Female
  Weight: 65.77 kg

DRUGS (1)
  1. AIMOVIG [Suspect]
     Active Substance: ERENUMAB-AOOE
     Indication: MIGRAINE
     Dosage: 70 MG, QMO
     Route: 058
     Dates: start: 20180927

REACTIONS (12)
  - Fatigue [Recovered/Resolved]
  - Thirst [Not Recovered/Not Resolved]
  - Anxiety [Recovering/Resolving]
  - Dyspepsia [Recovering/Resolving]
  - Pyrexia [Recovering/Resolving]
  - Insomnia [Recovering/Resolving]
  - Dry mouth [Not Recovered/Not Resolved]
  - Fibromyalgia [Recovering/Resolving]
  - Hyperhidrosis [Recovering/Resolving]
  - Balance disorder [Recovering/Resolving]
  - Nausea [Recovered/Resolved]
  - Dizziness [Recovering/Resolving]

NARRATIVE: CASE EVENT DATE: 2018
